FAERS Safety Report 24439621 (Version 1)
Quarter: 2024Q4

REPORT INFORMATION
  Report Type: Other
  Country: US (occurrence: US)
  Receive Date: 20241015
  Receipt Date: 20241015
  Transmission Date: 20250114
  Serious: Yes (Hospitalization)
  Sender: B BRAUN
  Company Number: US-B.Braun Medical Inc.-2163095

PATIENT
  Age: 62 Year
  Sex: Male

DRUGS (7)
  1. CEFTRIAXONE SODIUM [Suspect]
     Active Substance: CEFTRIAXONE SODIUM
     Indication: Brain abscess
  2. CEFTRIAXONE SODIUM [Suspect]
     Active Substance: CEFTRIAXONE SODIUM
     Indication: Endocarditis
  3. CEFTRIAXONE SODIUM [Suspect]
     Active Substance: CEFTRIAXONE SODIUM
     Indication: Liver abscess
  4. METRONIDAZOLE [Suspect]
     Active Substance: METRONIDAZOLE
  5. VANCOMYCIN [Concomitant]
     Active Substance: VANCOMYCIN
  6. LEVETIRACETAM [Concomitant]
     Active Substance: LEVETIRACETAM
  7. RIVAROXABAN [Concomitant]
     Active Substance: RIVAROXABAN

REACTIONS (3)
  - Drug reaction with eosinophilia and systemic symptoms [Recovering/Resolving]
  - Off label use [Recovering/Resolving]
  - Drug-induced liver injury [Recovering/Resolving]
